FAERS Safety Report 16265018 (Version 1)
Quarter: 2019Q2

REPORT INFORMATION
  Report Type: Spontaneous
  Country: BR (occurrence: BR)
  Receive Date: 20190502
  Receipt Date: 20190502
  Transmission Date: 20190711
  Serious: Yes (Life-Threatening, Hospitalization, Other)
  Sender: FDA-Public Use
  Company Number: BR-NODEN PHARMA DAC-NOD-2019-000054

PATIENT
  Sex: Female
  Weight: 60 kg

DRUGS (7)
  1. RASILEZ [Suspect]
     Active Substance: ALISKIREN
     Indication: BLOOD PRESSURE INADEQUATELY CONTROLLED
  2. RASILEZ [Suspect]
     Active Substance: ALISKIREN
     Indication: RENAL DISORDER
     Dosage: 300 MILLIGRAM,QD (1 TABLET IN THE MORNING OR 2 TABLETS OF 150 MG IN THE MORNING)
     Route: 048
     Dates: start: 201711, end: 201902
  3. NITRENDIPINE [Concomitant]
     Active Substance: NITRENDIPINE
     Indication: PRODUCT USED FOR UNKNOWN INDICATION
     Dosage: UNK
     Route: 065
  4. CLOPIDOGREL [Concomitant]
     Active Substance: CLOPIDOGREL BISULFATE
     Indication: PRODUCT USED FOR UNKNOWN INDICATION
     Dosage: 75 MILLIGRAM
     Route: 065
     Dates: start: 2018
  5. LOSARTAN. [Concomitant]
     Active Substance: LOSARTAN
     Indication: PRODUCT USED FOR UNKNOWN INDICATION
     Dosage: 50 MILLIGRAM
     Route: 065
  6. APRESOLINA [Concomitant]
     Active Substance: HYDRALAZINE HYDROCHLORIDE
     Indication: PRODUCT USED FOR UNKNOWN INDICATION
     Dosage: UNK
     Route: 065
  7. FUROSEMIDE. [Concomitant]
     Active Substance: FUROSEMIDE
     Indication: PRODUCT USED FOR UNKNOWN INDICATION
     Dosage: 40 MILLIGRAM
     Route: 065
     Dates: start: 2018

REACTIONS (5)
  - Pulmonary oedema [Recovered/Resolved]
  - Blood pressure inadequately controlled [Recovered/Resolved]
  - Product use in unapproved indication [Unknown]
  - Cardiac failure [Unknown]
  - Wrong technique in product usage process [Unknown]
